FAERS Safety Report 12226981 (Version 1)
Quarter: 2016Q1

REPORT INFORMATION
  Report Type: Report from Study
  Country: BR (occurrence: BR)
  Receive Date: 20160331
  Receipt Date: 20160331
  Transmission Date: 20160526
  Serious: Yes (Other)
  Sender: FDA-Public Use
  Company Number: BR-JNJFOC-20160325161

PATIENT
  Sex: Female

DRUGS (1)
  1. REMICADE [Suspect]
     Active Substance: INFLIXIMAB
     Indication: CROHN^S DISEASE
     Dosage: MISSED DOSE DUE TO UNAVAILABLITY ON GOVERNMENT
     Route: 042
     Dates: start: 20130401

REACTIONS (4)
  - Paraesthesia [Unknown]
  - Drug ineffective [Unknown]
  - Pain in extremity [Unknown]
  - Back pain [Unknown]
